FAERS Safety Report 23964939 (Version 1)
Quarter: 2024Q2

REPORT INFORMATION
  Report Type: Spontaneous
  Country: NL (occurrence: NL)
  Receive Date: 20240612
  Receipt Date: 20240612
  Transmission Date: 20240716
  Serious: Yes (Death, Other)
  Sender: FDA-Public Use
  Company Number: NL-LRB-00980559

PATIENT
  Age: 34 Year
  Sex: Male

DRUGS (1)
  1. CLOZAPINE [Suspect]
     Active Substance: CLOZAPINE
     Indication: Schizophrenia
     Dosage: 1 DOSAGE FORM, UNCLEAR GIVEN THE EMERGENCY SITUATION. GUIDED BY MIRRORS, THE PERSON WAS WORKING ON A
     Route: 065
     Dates: start: 20230101

REACTIONS (1)
  - Eosinophilic myocarditis [Fatal]
